FAERS Safety Report 7548839-8 (Version None)
Quarter: 2011Q2

REPORT INFORMATION
  Report Type: 
  Country: None (occurrence: None)
  Receive Date: 20110615
  Receipt Date: 20110609
  Transmission Date: 20111010
  Serious: Yes (Other)
  Sender: FDA-Public Use
  Company Number: DE-PFIZER INC-2011125987

PATIENT
  Age: 75 Year
  Sex: Male

DRUGS (1)
  1. LYRICA [Suspect]
     Indication: POLYNEUROPATHY
     Dosage: 75 MG, 2X/DAY
     Dates: start: 20110531, end: 20110604

REACTIONS (3)
  - FATIGUE [None]
  - FEELING DRUNK [None]
  - LIVER FUNCTION TEST ABNORMAL [None]
